FAERS Safety Report 18880563 (Version 2)
Quarter: 2021Q1

REPORT INFORMATION
  Report Type: Other
  Country: US (occurrence: US)
  Receive Date: 20210212
  Receipt Date: 20210310
  Transmission Date: 20210420
  Serious: Yes (Other)
  Sender: FDA-Public Use
  Company Number: US-ROCHE-1241779

PATIENT

DRUGS (2)
  1. SORAFENIB [Suspect]
     Active Substance: SORAFENIB
     Indication: COLORECTAL CANCER METASTATIC
     Dosage: MAX VIA DOSE ESCALATION PER CYCLE. CYCLES WERE Q21D (TWICE PER 1 DAY) WITH TUMOR ASSESSMENTS Q9W (EV
     Route: 048
  2. CAPECITABINE. [Suspect]
     Active Substance: CAPECITABINE
     Indication: COLORECTAL CANCER METASTATIC
     Dosage: DAY 1 ? DAY 14 CYCLES WERE Q21D  (EVERY 21 DAY) WITH TUMOR ASSESSMENTS Q9W (EVERY 9 WEEKS).
     Route: 048

REACTIONS (15)
  - Diarrhoea [Unknown]
  - Hepatobiliary disease [Unknown]
  - Fatigue [Unknown]
  - Gastrointestinal disorder [Unknown]
  - Pelvic infection [Unknown]
  - Abdominal pain [Unknown]
  - Pain [Unknown]
  - Anaemia [Unknown]
  - Hypertension [Unknown]
  - Dehydration [Unknown]
  - Palmar-plantar erythrodysaesthesia syndrome [Unknown]
  - Nausea [Unknown]
  - Vomiting [Unknown]
  - Stomatitis [Unknown]
  - Thrombocytopenia [Unknown]
